FAERS Safety Report 4467927-6 (Version None)
Quarter: 2004Q3

REPORT INFORMATION
  Report Type: 
  Country: None (occurrence: None)
  Receive Date: 20040927
  Receipt Date: 20040917
  Transmission Date: 20050211
  Serious: Yes (Hospitalization, Other)
  Sender: FDA-Public Use
  Company Number: 2004-02865

PATIENT
  Age: 18 Year
  Sex: Female

DRUGS (2)
  1. MENOMUNE-A/C/Y/W-135 [Suspect]
     Indication: IMMUNISATION
     Dosage: S.C., DELTOID L
     Route: 058
     Dates: start: 20040823
  2. TUBERSOL [Suspect]
     Indication: IMMUNISATION
     Dosage: FOREARM L
     Dates: start: 20040823

REACTIONS (8)
  - ASTHENIA [None]
  - BRADYCARDIA [None]
  - DIZZINESS [None]
  - DRUG HYPERSENSITIVITY [None]
  - DYSPNOEA [None]
  - LATEX ALLERGY [None]
  - SYNCOPE VASOVAGAL [None]
  - THROAT TIGHTNESS [None]
